FAERS Safety Report 12333951 (Version 1)
Quarter: 2016Q2

REPORT INFORMATION
  Report Type: Spontaneous
  Country: US (occurrence: US)
  Receive Date: 20160504
  Receipt Date: 20160504
  Transmission Date: 20160815
  Serious: No
  Sender: FDA-Public Use
  Company Number: US-ROCHE-ITM201502IM010393

PATIENT
  Sex: Male
  Weight: 104.42 kg

DRUGS (5)
  1. ESBRIET [Suspect]
     Active Substance: PIRFENIDONE
     Route: 048
     Dates: start: 201501
  2. XARELTO [Concomitant]
     Active Substance: RIVAROXABAN
  3. ASPIRIN. [Concomitant]
     Active Substance: ASPIRIN
  4. ESBRIET [Suspect]
     Active Substance: PIRFENIDONE
     Indication: IDIOPATHIC PULMONARY FIBROSIS
     Route: 048
     Dates: start: 20150202
  5. ESBRIET [Suspect]
     Active Substance: PIRFENIDONE
     Route: 048
     Dates: start: 20150204

REACTIONS (5)
  - Dysentery [Unknown]
  - Diarrhoea [Unknown]
  - Drug dose omission [Unknown]
  - Fatigue [Unknown]
  - Sunburn [Unknown]
